FAERS Safety Report 6891649-5 (Version None)
Quarter: 2010Q3

REPORT INFORMATION
  Report Type: 
  Country: None (occurrence: None)
  Receive Date: 20100731
  Receipt Date: 20070905
  Transmission Date: 20110219
  Serious: No
  Sender: FDA-Public Use
  Company Number: US-PFIZER INC-2007074414

PATIENT
  Sex: Female
  Weight: 60.9 kg

DRUGS (5)
  1. GABAPENTIN [Suspect]
     Indication: PAIN
     Route: 048
     Dates: start: 20070301
  2. ALTACE [Concomitant]
     Indication: HYPERTENSION
  3. SYNTHROID [Concomitant]
     Indication: THYROID DISORDER
  4. ZOCOR [Concomitant]
  5. LEXAPRO [Concomitant]

REACTIONS (1)
  - ALOPECIA [None]
